FAERS Safety Report 15935273 (Version 1)
Quarter: 2019Q1

REPORT INFORMATION
  Report Type: Report from Study
  Country: None (occurrence: FR)
  Receive Date: 20190207
  Receipt Date: 20190207
  Transmission Date: 20190417
  Serious: Yes (Life-Threatening, Hospitalization)
  Sender: FDA-Public Use
  Company Number: FR-ABBVIE-19K-056-2655736-00

PATIENT
  Age: 72 Year
  Sex: Female
  Weight: 66 kg

DRUGS (8)
  1. HUMIRA [Suspect]
     Active Substance: ADALIMUMAB
     Route: 058
     Dates: start: 20170106, end: 20170531
  2. IXEKIZUMAB [Concomitant]
     Active Substance: IXEKIZUMAB
     Indication: PRODUCT USED FOR UNKNOWN INDICATION
     Dosage: TALTZ
     Route: 058
     Dates: start: 201706, end: 201706
  3. IXEKIZUMAB [Concomitant]
     Active Substance: IXEKIZUMAB
     Route: 058
     Dates: start: 201901
  4. HUMIRA [Suspect]
     Active Substance: ADALIMUMAB
     Route: 058
     Dates: start: 201512, end: 20161129
  5. IXEKIZUMAB [Concomitant]
     Active Substance: IXEKIZUMAB
     Route: 058
     Dates: start: 201709, end: 201801
  6. HUMIRA [Suspect]
     Active Substance: ADALIMUMAB
     Indication: PSORIASIS
     Route: 058
     Dates: start: 201512, end: 201512
  7. IXEKIZUMAB [Concomitant]
     Active Substance: IXEKIZUMAB
     Route: 058
     Dates: start: 201706, end: 201708
  8. IXEKIZUMAB [Concomitant]
     Active Substance: IXEKIZUMAB
     Route: 058
     Dates: start: 201805, end: 201901

REACTIONS (4)
  - Chemical peritonitis [Recovered/Resolved]
  - Abdominal pain [Unknown]
  - Post procedural complication [Recovered/Resolved]
  - Cholecystectomy [Unknown]

NARRATIVE: CASE EVENT DATE: 20180109
